FAERS Safety Report 21391189 (Version 1)
Quarter: 2022Q3

REPORT INFORMATION
  Report Type: Spontaneous
  Country: US (occurrence: US)
  Receive Date: 20220929
  Receipt Date: 20220929
  Transmission Date: 20221026
  Serious: No
  Sender: FDA-Public Use
  Company Number: US-BAYER-2022A130736

PATIENT

DRUGS (1)
  1. ASTEPRO [Suspect]
     Active Substance: AZELASTINE HYDROCHLORIDE
     Indication: Nasal oedema

REACTIONS (3)
  - Drug ineffective for unapproved indication [Unknown]
  - Nasal discharge discolouration [None]
  - Condition aggravated [Unknown]
